FAERS Safety Report 18522264 (Version 2)
Quarter: 2020Q4

REPORT INFORMATION
  Report Type: Other
  Country: US (occurrence: US)
  Receive Date: 20201119
  Receipt Date: 20201123
  Transmission Date: 20210114
  Serious: No
  Sender: FDA-Public Use
  Company Number: US-ROCHE-2715636

PATIENT
  Age: 36 Year
  Sex: Male

DRUGS (1)
  1. OCREVUS [Suspect]
     Active Substance: OCRELIZUMAB
     Indication: MULTIPLE SCLEROSIS
     Dosage: VIAL 600 MG 1 2 MONTHS?INFUSE 300 MG DAY 1 AND THEN 300 MG DAY 15 ONGOING: YES
     Route: 065
     Dates: start: 20171124

REACTIONS (1)
  - COVID-19 [Unknown]

NARRATIVE: CASE EVENT DATE: 20201106
